FAERS Safety Report 9431840 (Version 1)
Quarter: 2013Q3

REPORT INFORMATION
  Report Type: Spontaneous
  Country: JP (occurrence: JP)
  Receive Date: 20130731
  Receipt Date: 20130731
  Transmission Date: 20140515
  Serious: Yes (Other)
  Sender: FDA-Public Use
  Company Number: PHHY2013JP080525

PATIENT
  Sex: Male

DRUGS (1)
  1. DIOVAN [Suspect]
     Indication: HYPERTENSION
     Dosage: 80 MG, DAILY
     Route: 048

REACTIONS (6)
  - Cerebral infarction [Unknown]
  - Hypoaesthesia [Unknown]
  - Dysarthria [Unknown]
  - Coordination abnormal [Unknown]
  - Blood pressure increased [Recovering/Resolving]
  - Nausea [Unknown]
